FAERS Safety Report 6867500-6 (Version None)
Quarter: 2010Q3

REPORT INFORMATION
  Report Type: 
  Country: None (occurrence: None)
  Receive Date: 20100722
  Receipt Date: 20100709
  Transmission Date: 20110219
  Serious: Yes (Hospitalization)
  Sender: FDA-Public Use
  Company Number: US-JNJFOC-20100705035

PATIENT
  Age: 6 Year
  Sex: Female
  Weight: 19 kg

DRUGS (3)
  1. ACETAMINOPHEN [Suspect]
     Indication: PRODUCT USED FOR UNKNOWN INDICATION
  2. ACETAMINOPHEN [Suspect]
  3. ACETAMINOPHEN [Suspect]

REACTIONS (3)
  - ACUTE HEPATIC FAILURE [None]
  - DRUG TOXICITY [None]
  - TRANSAMINASES INCREASED [None]
